FAERS Safety Report 6304679 (Version 2)
Quarter: 2020Q3

REPORT INFORMATION
  Report Type: Report from Study
  Country: CH (occurrence: CH)
  Receive Date: 20070504
  Receipt Date: 20070518
  Transmission Date: 20201104
  Serious: Yes (Other)
  Sender: FDA-Public Use
  Company Number: CH-JNJFOC-20070500039

PATIENT
  Age: 44 Year
  Sex: Male
  Weight: 81 kg

DRUGS (7)
  1. NORVIR [Suspect]
     Active Substance: RITONAVIR
     Indication: HIV INFECTION
     Route: 048
  2. ETRAVIRINE [Suspect]
     Active Substance: ETRAVIRINE
     Indication: HIV INFECTION
     Route: 048
  3. LAMIVUDINE. [Concomitant]
     Active Substance: LAMIVUDINE
     Indication: HIV INFECTION
     Route: 048
  4. DARUNAVIR [Suspect]
     Active Substance: DARUNAVIR
     Route: 048
  5. DARUNAVIR [Suspect]
     Active Substance: DARUNAVIR
     Indication: HIV INFECTION
     Route: 048
  6. WELLVONE [Concomitant]
     Active Substance: ATOVAQUONE
     Indication: TOXOPLASMOSIS PROPHYLAXIS
     Route: 048
  7. REMERON [Concomitant]
     Active Substance: MIRTAZAPINE
     Indication: DEPRESSION
     Route: 048

REACTIONS (1)
  - Immune reconstitution inflammatory syndrome [Recovering/Resolving]

NARRATIVE: CASE EVENT DATE: 20070310
